FAERS Safety Report 9733109 (Version 1)
Quarter: 2013Q4

REPORT INFORMATION
  Report Type: Spontaneous
  Country: TW (occurrence: TW)
  Receive Date: 20131205
  Receipt Date: 20131205
  Transmission Date: 20140711
  Serious: Yes (Other)
  Sender: FDA-Public Use
  Company Number: PHHY2013TW135675

PATIENT
  Age: 71 Year
  Sex: Male

DRUGS (6)
  1. WARFARIN [Suspect]
     Dosage: 7 MG, QD
  2. VERAPAMIL [Concomitant]
  3. PROTON PUMP INHIBITORS [Concomitant]
  4. H2-RECEPTOR ANTAGONISTS [Concomitant]
  5. CLOPIDOGREL [Concomitant]
  6. ASPIRIN [Concomitant]

REACTIONS (5)
  - Arteriosclerosis coronary artery [Unknown]
  - Myocardial ischaemia [Unknown]
  - Angina pectoris [Unknown]
  - Contusion [Unknown]
  - Vascular calcification [Unknown]
